FAERS Safety Report 4610840-1 (Version None)
Quarter: 2005Q1

REPORT INFORMATION
  Report Type: 
  Country: None (occurrence: None)
  Receive Date: 20050304
  Receipt Date: 20050301
  Transmission Date: 20050727
  Serious: Yes (Death)
  Sender: FDA-Public Use
  Company Number: 2005-125703-NL

PATIENT

DRUGS (1)
  1. MIRTAZAPINE [Suspect]
     Dosage: DF

REACTIONS (1)
  - SUDDEN DEATH [None]
